FAERS Safety Report 17377221 (Version 1)
Quarter: 2020Q1

REPORT INFORMATION
  Report Type: Spontaneous
  Country: US (occurrence: US)
  Receive Date: 20200205
  Receipt Date: 20200205
  Transmission Date: 20200409
  Serious: Yes (Other)
  Sender: FDA-Public Use
  Company Number: None

PATIENT
  Age: 37 Year
  Sex: Female
  Weight: 67.6 kg

DRUGS (9)
  1. LIDOCAINE 15%  10 ML [Concomitant]
     Dates: start: 20200205, end: 20200205
  2. PROPOFOL 200 MG [Concomitant]
     Dates: start: 20200205, end: 20200205
  3. METRONIDAZOLE 500 MG [Concomitant]
     Active Substance: METRONIDAZOLE
     Dates: start: 20200205, end: 20200205
  4. DEXAMETHASONE 8 MG [Concomitant]
     Dates: start: 20200205, end: 20200205
  5. SUGAMMADEX 200MG [Concomitant]
     Active Substance: SUGAMMADEX
     Dates: start: 20200205, end: 20200205
  6. ANCEF 2 G [Concomitant]
     Dates: start: 20200205, end: 20200205
  7. ODANSETRON 4 MG [Concomitant]
     Dates: start: 20200205, end: 20200205
  8. ROCURONIUM [Suspect]
     Active Substance: ROCURONIUM BROMIDE
     Indication: SURGERY
     Route: 040
     Dates: start: 20200205, end: 20200205
  9. MIDAZOLAM 2 MG [Concomitant]
     Dates: start: 20200205, end: 20200205

REACTIONS (2)
  - Therapeutic product effect decreased [None]
  - Product compounding quality issue [None]

NARRATIVE: CASE EVENT DATE: 20200205
